FAERS Safety Report 21741090 (Version 1)
Quarter: 2022Q4

REPORT INFORMATION
  Report Type: Spontaneous
  Country: CN (occurrence: CN)
  Receive Date: 20221216
  Receipt Date: 20221216
  Transmission Date: 20230113
  Serious: Yes (Other)
  Sender: FDA-Public Use
  Company Number: CN-BAYER-2022A169897

PATIENT
  Age: 45 Year
  Sex: Male
  Weight: 64 kg

DRUGS (3)
  1. GLUCOBAY [Suspect]
     Active Substance: ACARBOSE
     Indication: Type 1 diabetes mellitus
     Dosage: 50 MG, TID
     Route: 048
     Dates: start: 20221105, end: 20221105
  2. GLUCOBAY [Suspect]
     Active Substance: ACARBOSE
     Indication: Type 1 diabetes mellitus
     Dosage: 0.1 G, TID
     Route: 048
     Dates: start: 20221106, end: 20221108
  3. INSULIN HUMAN [Concomitant]
     Active Substance: INSULIN HUMAN
     Dosage: 23 U, BID
     Route: 058

REACTIONS (3)
  - Drug-induced liver injury [Recovering/Resolving]
  - Hepatic function abnormal [Recovering/Resolving]
  - Off label use [None]

NARRATIVE: CASE EVENT DATE: 20221105
